FAERS Safety Report 9723054 (Version 1)
Quarter: 2013Q4

REPORT INFORMATION
  Report Type: Spontaneous
  Country: US (occurrence: None)
  Receive Date: 20131127
  Receipt Date: 20131127
  Transmission Date: 20140711
  Serious: No
  Sender: FDA-Public Use
  Company Number: None

PATIENT
  Age: 5 Month
  Sex: Female
  Weight: 63.5 kg

DRUGS (1)
  1. LEVOFLOXACIN [Suspect]
     Indication: SINUSITIS
     Dosage: TAKEN BY MOUTH
     Dates: start: 20130916, end: 20130916

REACTIONS (7)
  - Vertigo [None]
  - Dizziness [None]
  - Anxiety [None]
  - Insomnia [None]
  - Hypoaesthesia [None]
  - Hypoaesthesia [None]
  - Micturition urgency [None]
